FAERS Safety Report 25678807 (Version 1)
Quarter: 2025Q3

REPORT INFORMATION
  Report Type: Spontaneous
  Country: US (occurrence: US)
  Receive Date: 20250814
  Receipt Date: 20250814
  Transmission Date: 20251020
  Serious: No
  Sender: ROCHE
  Company Number: US-ROCHE-10000360185

PATIENT
  Sex: Male

DRUGS (5)
  1. XOLAIR PFS [Suspect]
     Active Substance: OMALIZUMAB
     Indication: Product used for unknown indication
     Route: 058
  2. AZELASTINE H SOL 137MCG/S [Concomitant]
     Route: 045
  3. BENADRYL ALL TAB 25MG [Concomitant]
  4. TRELEGY ELLI AEP 100-62.5 [Concomitant]
  5. ZYRTEC CHE 10MG [Concomitant]

REACTIONS (1)
  - Asthma [Recovered/Resolved]
